FAERS Safety Report 12861135 (Version 1)
Quarter: 2016Q4

REPORT INFORMATION
  Report Type: Spontaneous
  Country: JP (occurrence: JP)
  Receive Date: 20161019
  Receipt Date: 20161019
  Transmission Date: 20170207
  Serious: Yes (Hospitalization)
  Sender: FDA-Public Use
  Company Number: JP-SA-2016SA189440

PATIENT
  Age: 52 Year
  Sex: Male
  Weight: 130 kg

DRUGS (8)
  1. LANTUS XR [Suspect]
     Active Substance: INSULIN GLARGINE
     Indication: SUICIDE ATTEMPT
     Dosage: SUSTAINED-RELEASE INSULIN DOSE:60 UNIT(S)
     Route: 065
  2. LANTUS XR [Suspect]
     Active Substance: INSULIN GLARGINE
     Indication: TYPE 2 DIABETES MELLITUS
     Dosage: SUSTAINED-RELEASE INSULIN DOSE:900 UNIT(S)
     Route: 058
  3. INSULIN GLARGINE [Suspect]
     Active Substance: INSULIN GLARGINE
     Indication: TYPE 2 DIABETES MELLITUS
     Route: 058
  4. LANTUS XR [Suspect]
     Active Substance: INSULIN GLARGINE
     Indication: TYPE 2 DIABETES MELLITUS
     Dosage: SUSTAINED-RELEASE INSULIN DOSE:60 UNIT(S)
     Route: 065
  5. LANTUS XR [Suspect]
     Active Substance: INSULIN GLARGINE
     Indication: SUICIDE ATTEMPT
     Dosage: SUSTAINED-RELEASE INSULIN DOSE:900 UNIT(S)
     Route: 058
  6. INSULIN GLARGINE [Suspect]
     Active Substance: INSULIN GLARGINE
     Indication: TYPE 2 DIABETES MELLITUS
     Dosage: DOSE:26 UNIT(S)
     Route: 065
  7. INSULIN GLARGINE [Suspect]
     Active Substance: INSULIN GLARGINE
     Indication: SUICIDE ATTEMPT
     Dosage: DOSE:26 UNIT(S)
     Route: 065
  8. INSULIN GLARGINE [Suspect]
     Active Substance: INSULIN GLARGINE
     Indication: SUICIDE ATTEMPT
     Route: 058

REACTIONS (5)
  - Intentional overdose [Unknown]
  - Injection site reaction [Unknown]
  - Blood glucose decreased [Recovering/Resolving]
  - Overdose [Unknown]
  - Scar [Unknown]
